FAERS Safety Report 5473643-4 (Version None)
Quarter: 2007Q4

REPORT INFORMATION
  Report Type: 
  Country: None (occurrence: None)
  Receive Date: 20071001
  Receipt Date: 20070924
  Transmission Date: 20080405
  Serious: Yes (Hospitalization, Other)
  Sender: FDA-Public Use
  Company Number: DE-ROXANE LABORATORIES, INC-2007-BP-21521RO

PATIENT
  Age: 42 Year
  Sex: Male

DRUGS (2)
  1. LITHIUM CARBONATE [Suspect]
     Indication: SCHIZOAFFECTIVE DISORDER
  2. OLANZAPINE [Concomitant]
     Indication: MANIA

REACTIONS (3)
  - BRUGADA SYNDROME [None]
  - MANIA [None]
  - SYNCOPE [None]
